APPROVED DRUG PRODUCT: SONORX
Active Ingredient: SIMETHICONE-CELLULOSE
Strength: 7.5MG/ML
Dosage Form/Route: SUSPENSION;ORAL
Application: N020773 | Product #001
Applicant: BRACCO DIAGNOSTICS INC
Approved: Oct 29, 1998 | RLD: No | RS: No | Type: DISCN